FAERS Safety Report 11273743 (Version 3)
Quarter: 2015Q4

REPORT INFORMATION
  Report Type: Report from Study
  Country: US (occurrence: US)
  Receive Date: 20150715
  Receipt Date: 20151217
  Transmission Date: 20160304
  Serious: No
  Sender: FDA-Public Use
  Company Number: US-ALEXION-A201502302

PATIENT
  Sex: Male

DRUGS (1)
  1. SOLIRIS [Suspect]
     Active Substance: ECULIZUMAB
     Indication: HAEMOLYTIC URAEMIC SYNDROME
     Dosage: UNK
     Route: 042

REACTIONS (5)
  - Hypoaesthesia [Unknown]
  - Vomiting [Unknown]
  - Muscle spasms [Unknown]
  - Muscle strain [Unknown]
  - Back pain [Unknown]

NARRATIVE: CASE EVENT DATE: 20150615
